FAERS Safety Report 20038343 (Version 1)
Quarter: 2021Q4

REPORT INFORMATION
  Report Type: Spontaneous
  Country: US (occurrence: US)
  Receive Date: 20211105
  Receipt Date: 20211105
  Transmission Date: 20220303
  Serious: No
  Sender: FDA-Public Use
  Company Number: US-EYEVANCE PHARMACEUTICALS-2021EYE00095

PATIENT
  Sex: Female

DRUGS (1)
  1. NATACYN [Suspect]
     Active Substance: NATAMYCIN
     Route: 047

REACTIONS (4)
  - Foreign body in eye [Unknown]
  - Liquid product physical issue [Unknown]
  - Eye pain [Unknown]
  - Eye irritation [Unknown]
